FAERS Safety Report 8596521-0 (Version None)
Quarter: 2012Q3

REPORT INFORMATION
  Report Type: 
  Country: None (occurrence: None)
  Receive Date: 20120815
  Receipt Date: 20120808
  Transmission Date: 20120928
  Serious: Yes (Other)
  Sender: FDA-Public Use
  Company Number: US-BAYER-2012-054846

PATIENT
  Age: 35 Year
  Sex: Female

DRUGS (1)
  1. MIRENA [Suspect]
     Indication: CONTRACEPTION
     Dosage: 20 MCG/24HR, CONT
     Route: 015
     Dates: start: 20110221, end: 20120622

REACTIONS (6)
  - DEVICE BREAKAGE [None]
  - DEVICE DIFFICULT TO USE [None]
  - VULVOVAGINAL PAIN [None]
  - DEVICE DISLOCATION [None]
  - PAIN [None]
  - ABDOMINAL PAIN LOWER [None]
